FAERS Safety Report 21774126 (Version 1)
Quarter: 2022Q4

REPORT INFORMATION
  Report Type: Report from Study
  Country: BE (occurrence: BE)
  Receive Date: 20221223
  Receipt Date: 20221223
  Transmission Date: 20230112
  Serious: Yes (Hospitalization, Other)
  Sender: FDA-Public Use
  Company Number: BE-CELLTRION INC.-2022BE021401

PATIENT

DRUGS (3)
  1. RITUXIMAB [Suspect]
     Active Substance: RITUXIMAB
     Indication: Splenic marginal zone lymphoma
     Dosage: (550.11 MG) (DAYS 1, 8, 15 AND 22 IN CYCLE 1 THEN DAY 1 OF EVERY 28-DAY CYCLE FROM CYCLE
     Route: 042
     Dates: start: 20211022
  2. TAFASITAMAB-CXIX [Suspect]
     Active Substance: TAFASITAMAB-CXIX
     Indication: Splenic marginal zone lymphoma
     Dosage: PATIENT RECEIVED DOSE ON DAYS 1, 8, 15 AND 22 OF CYCLES 1 TO 3 THEN DAYS 1 AND 15 OF CYCLES
     Route: 048
     Dates: start: 20211022
  3. LENALIDOMIDE [Suspect]
     Active Substance: LENALIDOMIDE
     Indication: Splenic marginal zone lymphoma
     Dosage: PATIENT RECEIVED DOSE ON DAYS 1 TO 21 OF EVERY 28 DAY CYCLE FOR 12 CYCLES. LAST DOSE PRIOR TO
     Route: 042
     Dates: start: 20211022

REACTIONS (6)
  - Pleural effusion [Recovered/Resolved]
  - Pneumonia [Recovered/Resolved]
  - Gastroenteritis [Recovered/Resolved]
  - Pyrexia [Recovered/Resolved]
  - Pyrexia [Recovered/Resolved]
  - Off label use [Unknown]

NARRATIVE: CASE EVENT DATE: 20211106
